FAERS Safety Report 23078444 (Version 2)
Quarter: 2023Q4

REPORT INFORMATION
  Report Type: Report from Study
  Country: GB (occurrence: GB)
  Receive Date: 20231018
  Receipt Date: 20231208
  Transmission Date: 20240110
  Serious: Yes (Hospitalization, Other)
  Sender: FDA-Public Use
  Company Number: GB-UCBSA-2023049258

PATIENT
  Sex: Male

DRUGS (9)
  1. NEUPRO [Suspect]
     Active Substance: ROTIGOTINE
     Indication: Product used for unknown indication
     Dosage: 2 MILLIGRAM PER DAY
  2. NEUPRO [Suspect]
     Active Substance: ROTIGOTINE
     Dosage: 4 MILLIGRAM PER DAY
  3. CARBIDOPA\LEVODOPA [Suspect]
     Active Substance: CARBIDOPA\LEVODOPA
     Indication: Parkinson^s disease
     Dosage: MD: 10.5 CR: 1.8 ED: 1.0, 20MG/5MG; ROUTE: JEJUNAL
     Dates: start: 2023
  4. CARBIDOPA\LEVODOPA [Suspect]
     Active Substance: CARBIDOPA\LEVODOPA
     Dosage: MD: 10.5 CR: 1.8 ED: 1.0, 20MG/5MG; ROUTE: JEJUNAL
     Dates: start: 202306
  5. CARBIDOPA\LEVODOPA [Suspect]
     Active Substance: CARBIDOPA\LEVODOPA
     Dosage: MD:10.5 MLS CR:2.0 ML/HR ED:1.0ML;
     Dates: start: 2023
  6. CARBIDOPA\LEVODOPA [Suspect]
     Active Substance: CARBIDOPA\LEVODOPA
     Dosage: MD: 10.5 MLS CR: 1.9 ML/HR ED:1.0ML;
     Dates: start: 2023, end: 2023
  7. ATORVASTATIN CALCIUM [Concomitant]
     Active Substance: ATORVASTATIN CALCIUM
     Indication: Product used for unknown indication
     Dosage: 10 MILLIGRAM PER DAY
  8. POLYETHYLENE GLYCOL 3350\POTASSIUM CHLORIDE\SODIUM BICARBONATE\SODIUM [Concomitant]
     Active Substance: POLYETHYLENE GLYCOL 3350\POTASSIUM CHLORIDE\SODIUM BICARBONATE\SODIUM CHLORIDE
     Indication: Product used for unknown indication
     Dosage: UNK, AS REQUIRED
  9. MELATONIN [Concomitant]
     Active Substance: MELATONIN
     Indication: Product used for unknown indication
     Dosage: 2MG TABLETS UP TO 6 TO 8MG AT NIGHT IF REQUIRED

REACTIONS (16)
  - Hiatus hernia [Unknown]
  - Hallucination [Unknown]
  - Gait disturbance [Unknown]
  - Mobility decreased [Unknown]
  - Tremor [Unknown]
  - Hypersomnia [Unknown]
  - Dyskinesia [Unknown]
  - Muscle rigidity [Unknown]
  - Bradykinesia [Unknown]
  - On and off phenomenon [Unknown]
  - Stoma site discharge [Recovered/Resolved]
  - Freezing phenomenon [Not Recovered/Not Resolved]
  - Unevaluable event [Unknown]
  - Therapeutic product effect incomplete [Unknown]
  - Incorrect dose administered [Unknown]
  - Therapeutic response shortened [Unknown]

NARRATIVE: CASE EVENT DATE: 20230101
